FAERS Safety Report 6793367-0 (Version None)
Quarter: 2010Q2

REPORT INFORMATION
  Report Type: 
  Country: None (occurrence: None)
  Receive Date: 20100624
  Receipt Date: 20100122
  Transmission Date: 20101027
  Serious: Yes (Death)
  Sender: FDA-Public Use
  Company Number: US-MYLANLABS-2010S1000024

PATIENT
  Age: 36 Year
  Sex: Female

DRUGS (16)
  1. CLOZAPINE [Suspect]
     Route: 048
  2. PAROXETINE [Concomitant]
  3. ALBUTEROL SULFATE [Concomitant]
  4. MUPIROCIN [Concomitant]
  5. OMEPRAZOLE [Concomitant]
  6. HYDROCODONE BITARTRATE AND ACETAMINOPHEN [Concomitant]
     Route: 048
  7. DETROL LA [Concomitant]
  8. HYDROCHLOROTHIAZIDE [Concomitant]
  9. VENTOLIN [Concomitant]
     Route: 055
  10. LIPITOR [Concomitant]
  11. FERROUS SULFATE TAB [Concomitant]
  12. GABAPENTIN [Concomitant]
  13. CLONIDINE [Concomitant]
  14. PRAZOSIN HCL [Concomitant]
  15. ROPINIROLE [Concomitant]
  16. SPIRIVA [Concomitant]
     Route: 055

REACTIONS (1)
  - DEATH [None]
